FAERS Safety Report 12302824 (Version 1)
Quarter: 2016Q2

REPORT INFORMATION
  Report Type: Spontaneous
  Country: FR (occurrence: FR)
  Receive Date: 20160426
  Receipt Date: 20160426
  Transmission Date: 20160815
  Serious: Yes (Hospitalization)
  Sender: FDA-Public Use
  Company Number: FR-ROCHE-1745456

PATIENT
  Age: 85 Year
  Sex: Male
  Weight: 95 kg

DRUGS (7)
  1. AVASTIN [Suspect]
     Active Substance: BEVACIZUMAB
     Indication: APPENDIX CANCER
     Dosage: 03/DEC/2015 (SECOND CYCLE), 17/DEC/2015 (THIRD CYCLE), 31/DEC/2015 (FOURTH CYCLE)
     Route: 042
     Dates: start: 20151119
  2. AVASTIN [Suspect]
     Active Substance: BEVACIZUMAB
     Indication: METASTASES TO LIVER
  3. FLUOROURACILE ACCORD [Suspect]
     Active Substance: FLUOROURACIL
     Indication: PRODUCT USED FOR UNKNOWN INDICATION
     Dosage: 03/DEC/2015 (SECOND CYCLE), 17/DEC/2015 (THIRD CYCLE), 31/DEC/2015 (FOURTH CYCLE)
     Route: 065
     Dates: start: 20151119
  4. IRINOTECAN HOSPIRA [Suspect]
     Active Substance: IRINOTECAN
     Indication: METASTASES TO LIVER
  5. FOLINIC ACID [Concomitant]
     Active Substance: LEUCOVORIN
  6. IRINOTECAN HOSPIRA [Suspect]
     Active Substance: IRINOTECAN
     Indication: APPENDIX CANCER
     Dosage: 03/DEC/2015 (SECOND CYCLE), 17/DEC/2015 (THIRD CYCLE), 31/DEC/2015 (FOURTH CYCLE)
     Route: 042
     Dates: start: 20151119
  7. PRITOR (FRANCE) [Suspect]
     Active Substance: TELMISARTAN
     Indication: PRODUCT USED FOR UNKNOWN INDICATION
     Route: 048
     Dates: end: 20151231

REACTIONS (3)
  - Hyperkalaemia [Recovered/Resolved]
  - Acute prerenal failure [Recovered/Resolved]
  - Diarrhoea [Recovered/Resolved]

NARRATIVE: CASE EVENT DATE: 20151231
